FAERS Safety Report 9977051 (Version 1)
Quarter: 2014Q1

REPORT INFORMATION
  Report Type: Report from Study
  Country: US (occurrence: US)
  Receive Date: 20140306
  Receipt Date: 20140306
  Transmission Date: 20141002
  Serious: No
  Sender: FDA-Public Use
  Company Number: US-ABBVIE-13P-163-1165045-00

PATIENT
  Age: 62 Year
  Sex: Female
  Weight: 49.94 kg

DRUGS (9)
  1. HUMIRA [Suspect]
     Indication: CROHN^S DISEASE
     Dates: start: 201309
  2. METHOTREXATE [Concomitant]
     Indication: CROHN^S DISEASE
  3. DICYCLOMINE [Concomitant]
     Indication: CROHN^S DISEASE
  4. AMITRIPTYLINE [Concomitant]
     Indication: CROHN^S DISEASE
  5. FIBERCON [Concomitant]
     Indication: CROHN^S DISEASE
  6. ZOLOFT [Concomitant]
     Indication: DEPRESSION
  7. CALCIUM [Concomitant]
     Indication: BLOOD CALCIUM DECREASED
  8. VITAMIN B 12 [Concomitant]
     Indication: VITAMIN B12 DECREASED
  9. PROMETHAZINE [Concomitant]
     Indication: NAUSEA

REACTIONS (1)
  - Incorrect dose administered [Not Recovered/Not Resolved]
